FAERS Safety Report 15968765 (Version 1)
Quarter: 2019Q1

REPORT INFORMATION
  Report Type: Spontaneous
  Country: IT (occurrence: IT)
  Receive Date: 20190215
  Receipt Date: 20190215
  Transmission Date: 20190418
  Serious: Yes (Other)
  Sender: FDA-Public Use
  Company Number: IT-BAYER-2019-029620

PATIENT
  Age: 33 Year
  Sex: Female

DRUGS (3)
  1. ACETYLSALICYLIC ACID (CARDIO) [Suspect]
     Active Substance: ASPIRIN
     Indication: COGAN^S SYNDROME
     Dosage: 100 MG, QD
     Route: 048
  2. CYCLOSPORINE. [Suspect]
     Active Substance: CYCLOSPORINE
     Dosage: 300 MG, OW
  3. AZATHIOPRINE. [Suspect]
     Active Substance: AZATHIOPRINE
     Dosage: 200 MG, OW

REACTIONS (5)
  - Breech presentation [Recovered/Resolved]
  - Product use in unapproved indication [None]
  - Exposure during pregnancy [None]
  - Foetal growth restriction [Recovered/Resolved]
  - Off label use [None]
